FAERS Safety Report 11495178 (Version 1)
Quarter: 2015Q3

REPORT INFORMATION
  Report Type: Spontaneous
  Country: FR (occurrence: FR)
  Receive Date: 20150911
  Receipt Date: 20150911
  Transmission Date: 20151125
  Serious: Yes (Life-Threatening, Hospitalization)
  Sender: FDA-Public Use
  Company Number: FR-SA-2015SA127448

PATIENT
  Sex: Male

DRUGS (9)
  1. LANTUS [Suspect]
     Active Substance: INSULIN GLARGINE
     Indication: TYPE 1 DIABETES MELLITUS
     Route: 058
  2. NOVORAPID [Suspect]
     Active Substance: INSULIN ASPART
     Indication: TYPE 1 DIABETES MELLITUS
     Route: 058
  3. LANTUS [Suspect]
     Active Substance: INSULIN GLARGINE
     Indication: TYPE 1 DIABETES MELLITUS
     Dosage: DAILY DOSE:SUPPOSED QUANTITY ADMINISTERED ON 17/07/2015 15 SYRINGES OF 10 000 U
     Route: 058
  4. NOVORAPID [Suspect]
     Active Substance: INSULIN ASPART
     Indication: TYPE 1 DIABETES MELLITUS
     Route: 058
  5. EFFEXOR LP [Concomitant]
     Active Substance: VENLAFAXINE HYDROCHLORIDE
     Dosage: EFFEXOR 75 LP 3 TABLETS IN THE MORNING
     Dates: start: 201508
  6. CLOPIXOL [Concomitant]
     Active Substance: ZUCLOPENTHIXOL ACETATE
     Dosage: DOSE: 3 DROPS IN THE MORNING AND AT 16H AND 5 DROPS AT BEDTIME
     Dates: start: 201408
  7. LANTUS [Suspect]
     Active Substance: INSULIN GLARGINE
     Indication: TYPE 1 DIABETES MELLITUS
     Dosage: DOSE:SUPPOSED QUANTITY ADMINISTERED ON 17/07/2015 15 SYRINGES OF 10 000 U
     Route: 058
     Dates: start: 20150717, end: 20150717
  8. IMOVANE [Concomitant]
     Active Substance: ZOPICLONE
     Dosage: AT BEDTIME IF NECESSARY.
  9. TRANXENE T-TAB [Concomitant]
     Active Substance: CLORAZEPATE DIPOTASSIUM
     Dosage: TRANXENE 10 4/DAY
     Dates: start: 201508

REACTIONS (5)
  - Suicide attempt [Unknown]
  - Hypoglycaemia [Recovered/Resolved]
  - Diabetic coma [Recovered/Resolved]
  - Tonic convulsion [Recovered/Resolved]
  - Tachycardia [Recovered/Resolved]

NARRATIVE: CASE EVENT DATE: 201506
